FAERS Safety Report 4544698-6 (Version None)
Quarter: 2005Q1

REPORT INFORMATION
  Report Type: 
  Country: None (occurrence: None)
  Receive Date: 20050105
  Receipt Date: 20041229
  Transmission Date: 20050727
  Serious: Yes (Hospitalization)
  Sender: FDA-Public Use
  Company Number: 200419840US

PATIENT
  Sex: Male

DRUGS (7)
  1. LANTUS [Suspect]
     Indication: DIABETES MELLITUS
     Dosage: DOSE UNIT: UNITS
  2. NOVOLOG [Concomitant]
     Dosage: DOSE: NOT PROVIDED
  3. TRICOR [Concomitant]
     Dosage: DOSE: NOT PROVIDED
  4. METFORMIN HCL [Concomitant]
     Dosage: DOSE: NOT PROVIDED
  5. SULFASALAZINE [Concomitant]
     Dosage: DOSE: NOT PROVIDED
  6. PROTONIX [Concomitant]
     Dosage: DOSE: NOT PROVIDED
  7. LISINOPRIL [Concomitant]
     Dosage: DOSE: NOT PROVIDED

REACTIONS (3)
  - PHARYNGOLARYNGEAL PAIN [None]
  - THROAT TIGHTNESS [None]
  - TREMOR [None]
